FAERS Safety Report 12572133 (Version 2)
Quarter: 2018Q3

REPORT INFORMATION
  Report Type: Spontaneous
  Country: DK (occurrence: DK)
  Receive Date: 20160719
  Receipt Date: 20180817
  Transmission Date: 20181010
  Serious: Yes (Other)
  Sender: FDA-Public Use
  Company Number: PHHY2016DK098146

PATIENT
  Age: 53 Year
  Sex: Male
  Weight: 77.5 kg

DRUGS (1)
  1. ACLASTA [Suspect]
     Active Substance: ZOLEDRONIC ACID
     Indication: OSTEOPOROSIS
     Dosage: 5 MG, UNK
     Route: 042
     Dates: start: 20160209

REACTIONS (4)
  - Oral cavity fistula [Recovered/Resolved]
  - Osteonecrosis of jaw [Recovered/Resolved]
  - Tongue ulceration [Recovered/Resolved]
  - Exposed bone in jaw [Recovered/Resolved]

NARRATIVE: CASE EVENT DATE: 2016
